FAERS Safety Report 7662519-X (Version None)
Quarter: 2011Q3

REPORT INFORMATION
  Report Type: 
  Country: None (occurrence: None)
  Receive Date: 20110805
  Receipt Date: 20101123
  Transmission Date: 20111222
  Serious: No
  Sender: FDA-Public Use
  Company Number: US-ABBOTT-10P-163-0687435-00

PATIENT
  Sex: Female
  Weight: 79.45 kg

DRUGS (5)
  1. VALIUM [Concomitant]
     Indication: TENSION
  2. MORPHINE SULFATE [Concomitant]
     Indication: PAIN
  3. NIASPAN [Suspect]
     Indication: BLOOD CHOLESTEROL
     Dates: start: 20101027
  4. ROXICODONE [Concomitant]
     Indication: PAIN
     Dosage: UP TO 4/DAY
  5. ASPIRIN [Concomitant]
     Indication: PRODUCT USED FOR UNKNOWN INDICATION

REACTIONS (2)
  - SKIN BURNING SENSATION [None]
  - FLUSHING [None]
